FAERS Safety Report 8286740-5 (Version None)
Quarter: 2012Q2

REPORT INFORMATION
  Report Type: 
  Country: None (occurrence: None)
  Receive Date: 20120416
  Receipt Date: 20120410
  Transmission Date: 20120825
  Serious: No
  Sender: FDA-Public Use
  Company Number: US-BAYER-2012-035994

PATIENT
  Sex: Female

DRUGS (1)
  1. MAGNEVIST [Suspect]
     Indication: PRODUCT USED FOR UNKNOWN INDICATION
     Dosage: 13 ML, ONCE
     Dates: start: 20120404, end: 20120404

REACTIONS (4)
  - ORAL PRURITUS [None]
  - EAR PRURITUS [None]
  - LIP SWELLING [None]
  - URTICARIA [None]
